FAERS Safety Report 6679272-9 (Version None)
Quarter: 2010Q2

REPORT INFORMATION
  Report Type: 
  Country: None (occurrence: None)
  Receive Date: 20100413
  Receipt Date: 20100407
  Transmission Date: 20101027
  Serious: Yes (Death, Hospitalization, Other)
  Sender: FDA-Public Use
  Company Number: US-BAYER-200937785NA

PATIENT
  Age: 64 Year
  Sex: Male

DRUGS (6)
  1. NEXAVAR [Suspect]
     Indication: HEPATIC NEOPLASM MALIGNANT
     Dosage: TOTAL DAILY DOSE: 400 MG  UNIT DOSE: 200 MG
     Route: 048
     Dates: start: 20091022, end: 20091022
  2. NEXAVAR [Suspect]
     Dosage: TOTAL DAILY DOSE: 400 MG  UNIT DOSE: 200 MG
     Route: 048
     Dates: start: 20091001, end: 20091124
  3. NEXAVAR [Suspect]
     Dosage: TOTAL DAILY DOSE: 800 MG  UNIT DOSE: 200 MG
     Route: 048
     Dates: start: 20091023, end: 20091001
  4. LACTULOSE [Concomitant]
     Dates: end: 20091001
  5. LACTULOSE [Concomitant]
     Dates: start: 20091001
  6. DIURETICS [Concomitant]
     Indication: ASCITES

REACTIONS (7)
  - DIARRHOEA [None]
  - ENCEPHALOPATHY [None]
  - FATIGUE [None]
  - HEPATIC NEOPLASM MALIGNANT [None]
  - HYPERSOMNIA [None]
  - MENTAL IMPAIRMENT [None]
  - UNEVALUABLE EVENT [None]
